FAERS Safety Report 23465634 (Version 1)
Quarter: 2024Q1

REPORT INFORMATION
  Report Type: Spontaneous
  Country: ES (occurrence: ES)
  Receive Date: 20240201
  Receipt Date: 20240201
  Transmission Date: 20240409
  Serious: Yes (Other)
  Sender: FDA-Public Use
  Company Number: ES-EPICPHARMA-ES-2024EPCLIT00201

PATIENT
  Age: 49 Year
  Sex: Male

DRUGS (2)
  1. LIDOCAINE HYDROCHLORIDE [Suspect]
     Active Substance: LIDOCAINE HYDROCHLORIDE
     Indication: Anaesthesia
     Dosage: IN 2.5 ML OF A MIXTURE
     Route: 047
  2. BUPIVACAINE [Suspect]
     Active Substance: BUPIVACAINE
     Indication: Anaesthesia
     Dosage: IN 2.5 ML OF A MIXTURE
     Route: 047

REACTIONS (1)
  - Acute macular neuroretinopathy [Not Recovered/Not Resolved]
